FAERS Safety Report 18091536 (Version 1)
Quarter: 2020Q3

REPORT INFORMATION
  Report Type: Spontaneous
  Country: US (occurrence: US)
  Receive Date: 20200729
  Receipt Date: 20200729
  Transmission Date: 20201103
  Serious: No
  Sender: FDA-Public Use
  Company Number: None

PATIENT
  Age: 43 Year
  Sex: Female
  Weight: 119.7 kg

DRUGS (2)
  1. HYDROCHLOROTHIAZIDE. [Suspect]
     Active Substance: HYDROCHLOROTHIAZIDE
  2. AMLODIPINE [Suspect]
     Active Substance: AMLODIPINE BESYLATE
     Dates: start: 20190709

REACTIONS (8)
  - Panic attack [None]
  - Stress [None]
  - Myalgia [None]
  - Paraesthesia [None]
  - Dizziness [None]
  - Headache [None]
  - Musculoskeletal discomfort [None]
  - Tinnitus [None]

NARRATIVE: CASE EVENT DATE: 20190701
